FAERS Safety Report 9220123 (Version 1)
Quarter: 2013Q2

REPORT INFORMATION
  Report Type: Report from Study
  Country: US (occurrence: US)
  Receive Date: 20130409
  Receipt Date: 20130409
  Transmission Date: 20140414
  Serious: Yes (Other)
  Sender: FDA-Public Use
  Company Number: US-ROCHE-1211363

PATIENT
  Age: 60 Year
  Sex: Female

DRUGS (2)
  1. TOCILIZUMAB [Suspect]
     Indication: RHEUMATOID ARTHRITIS
     Route: 042
     Dates: start: 201211, end: 201302
  2. TOCILIZUMAB [Suspect]
     Route: 042
     Dates: start: 20130201, end: 201302

REACTIONS (8)
  - Knee operation [Unknown]
  - Rash [Not Recovered/Not Resolved]
  - Visual impairment [Not Recovered/Not Resolved]
  - Injection [Unknown]
  - Pyrexia [Unknown]
  - Chills [Unknown]
  - Diabetes mellitus [Unknown]
  - Restless legs syndrome [Unknown]
